FAERS Safety Report 23160843 (Version 2)
Quarter: 2023Q4

REPORT INFORMATION
  Report Type: Report from Study
  Country: CA (occurrence: CA)
  Receive Date: 20231108
  Receipt Date: 20231219
  Transmission Date: 20240109
  Serious: Yes (Hospitalization)
  Sender: FDA-Public Use
  Company Number: CA-ALXN-A202312915AA

PATIENT
  Sex: Male
  Weight: 91 kg

DRUGS (1)
  1. SOLIRIS [Suspect]
     Active Substance: ECULIZUMAB
     Indication: Atypical haemolytic uraemic syndrome
     Dosage: 1200 MILLIGRAM, Q2W
     Route: 042
     Dates: start: 20230919

REACTIONS (4)
  - Blood creatinine increased [Recovered/Resolved]
  - Viraemia [Recovered/Resolved]
  - Venous thrombosis [Recovering/Resolving]
  - Jugular vein thrombosis [Recovering/Resolving]
